FAERS Safety Report 9052528 (Version 2)
Quarter: 2013Q3

REPORT INFORMATION
  Report Type: Report from Study
  Country: CA (occurrence: CA)
  Receive Date: 20130207
  Receipt Date: 20130722
  Transmission Date: 20140515
  Serious: Yes (Death)
  Sender: FDA-Public Use
  Company Number: PHHY2013CA011469

PATIENT
  Age: 52 Year
  Sex: Male

DRUGS (8)
  1. CLOZARIL [Suspect]
     Indication: SCHIZOPHRENIA
     Dosage: UNK
     Route: 048
     Dates: start: 20081117
  2. CLOZARIL [Suspect]
     Dosage: 300 MG/DL
     Route: 048
     Dates: start: 2009
  3. EPIVAL [Concomitant]
     Dosage: 500 UKN, BID
  4. RISPERIDONE [Concomitant]
     Dosage: 3+3
  5. METFORMIN [Concomitant]
     Dosage: 500 UKN, BID
  6. CELEBREX [Concomitant]
     Dosage: 200 UKN
  7. ATORVASTATIN [Concomitant]
     Dosage: 10 UKN, QHS
  8. PANTOLOC CONTROL [Concomitant]
     Dosage: UNK

REACTIONS (1)
  - Death [Fatal]
